FAERS Safety Report 10100794 (Version 1)
Quarter: 2014Q2

REPORT INFORMATION
  Report Type: Spontaneous
  Country: US (occurrence: US)
  Receive Date: 20140423
  Receipt Date: 20140423
  Transmission Date: 20141212
  Serious: Yes (Death, Other)
  Sender: FDA-Public Use
  Company Number: US-BAXTER-2014BAX019610

PATIENT
  Age: 57 Year
  Sex: Male

DRUGS (4)
  1. CEFTRIAXONE INJECTION, USP (IN DEXTROSE) [Suspect]
     Indication: ANTIBIOTIC THERAPY
     Route: 065
  2. CEFTRIAXONE INJECTION, USP (IN DEXTROSE) [Suspect]
     Indication: PRODUCT USED FOR UNKNOWN INDICATION
  3. VANCOMYCIN INJECTION, USP [Suspect]
     Indication: ANTIBIOTIC THERAPY
     Route: 065
  4. VANCOMYCIN INJECTION, USP [Suspect]
     Indication: PRODUCT USED FOR UNKNOWN INDICATION

REACTIONS (4)
  - Condition aggravated [Unknown]
  - Pneumonia streptococcal [Unknown]
  - Leukocytosis [Unknown]
  - Hypoxia [Fatal]
